FAERS Safety Report 16423240 (Version 1)
Quarter: 2019Q2

REPORT INFORMATION
  Report Type: Spontaneous
  Country: NL (occurrence: NL)
  Receive Date: 20190612
  Receipt Date: 20190612
  Transmission Date: 20190711
  Serious: Yes (Other)
  Sender: FDA-Public Use
  Company Number: NL-ALLERGAN-1924710US

PATIENT
  Sex: Male

DRUGS (1)
  1. OZURDEX [Suspect]
     Active Substance: DEXAMETHASONE
     Indication: OEDEMA
     Dosage: 0.7 MG, SINGLE
     Route: 031

REACTIONS (4)
  - Vitreous loss [Unknown]
  - Hypotony of eye [Recovered/Resolved]
  - Visual field defect [Not Recovered/Not Resolved]
  - Off label use [Unknown]
